FAERS Safety Report 21523077 (Version 3)
Quarter: 2022Q4

REPORT INFORMATION
  Report Type: Other
  Country: CA (occurrence: CA)
  Receive Date: 20221029
  Receipt Date: 20221207
  Transmission Date: 20230113
  Serious: Yes (Hospitalization, Other)
  Sender: FDA-Public Use
  Company Number: CA-CELLTRION INC.-2022CA017502

PATIENT

DRUGS (39)
  1. RITUXIMAB [Suspect]
     Active Substance: RITUXIMAB
     Indication: Diffuse large B-cell lymphoma
     Dosage: 375.0 MG/M2 CYCLICAL
  2. RITUXIMAB [Suspect]
     Active Substance: RITUXIMAB
     Indication: Adenocarcinoma of colon
     Dosage: 375.0 MG/M2 CYCLICAL
     Route: 065
  3. RITUXIMAB [Suspect]
     Active Substance: RITUXIMAB
     Indication: Adenoma benign
     Dosage: UNK
     Route: 065
  4. RITUXIMAB [Suspect]
     Active Substance: RITUXIMAB
     Dosage: 375.0 MG/M2 CYCLICAL
     Route: 065
  5. RITUXIMAB [Suspect]
     Active Substance: RITUXIMAB
     Dosage: UNK
     Route: 065
  6. RITUXIMAB [Suspect]
     Active Substance: RITUXIMAB
     Dosage: 375 MG/M2
     Route: 065
  7. CYCLOPHOSPHAMIDE [Suspect]
     Active Substance: CYCLOPHOSPHAMIDE
     Indication: Adenoma benign
     Dosage: 400.0 MG/M2 CYCLICAL
  8. CYCLOPHOSPHAMIDE [Suspect]
     Active Substance: CYCLOPHOSPHAMIDE
     Indication: Adenocarcinoma of colon
     Dosage: 400.0 MG/M2 CYCLICAL
     Route: 065
  9. CYCLOPHOSPHAMIDE [Suspect]
     Active Substance: CYCLOPHOSPHAMIDE
     Indication: Diffuse large B-cell lymphoma
     Dosage: 400 MG/M2
     Route: 065
  10. CYCLOPHOSPHAMIDE [Suspect]
     Active Substance: CYCLOPHOSPHAMIDE
     Indication: Adenoma benign
     Dosage: UNK
     Route: 065
  11. CYCLOPHOSPHAMIDE [Suspect]
     Active Substance: CYCLOPHOSPHAMIDE
     Indication: Adenocarcinoma of colon
     Dosage: UNK
     Route: 065
  12. CYCLOPHOSPHAMIDE [Suspect]
     Active Substance: CYCLOPHOSPHAMIDE
     Indication: Diffuse large B-cell lymphoma
  13. DOXORUBICIN [Suspect]
     Active Substance: DOXORUBICIN
     Indication: Diffuse large B-cell lymphoma
     Dosage: 25.0 MG/M2 CYCLICAL
  14. DOXORUBICIN HYDROCHLORIDE [Suspect]
     Active Substance: DOXORUBICIN HYDROCHLORIDE
     Indication: Diffuse large B-cell lymphoma
     Dosage: UNK
     Route: 065
  15. DOXORUBICIN HYDROCHLORIDE [Suspect]
     Active Substance: DOXORUBICIN HYDROCHLORIDE
     Indication: Adenocarcinoma of colon
     Dosage: 25.0 MG/M2 CYCLICAL
     Route: 065
  16. DOXORUBICIN [Suspect]
     Active Substance: DOXORUBICIN
     Indication: Diffuse large B-cell lymphoma
     Dosage: 25.0 MG/M2 CYCLICAL
     Route: 065
  17. DOXORUBICIN [Suspect]
     Active Substance: DOXORUBICIN
     Indication: Adenoma benign
     Dosage: 25.0 MG/M2
     Route: 065
  18. DOXORUBICIN [Suspect]
     Active Substance: DOXORUBICIN
     Indication: Diffuse large B-cell lymphoma
     Route: 065
  19. DOXORUBICIN [Suspect]
     Active Substance: DOXORUBICIN
     Indication: Adenoma benign
  20. DOXORUBICIN HYDROCHLORIDE [Suspect]
     Active Substance: DOXORUBICIN HYDROCHLORIDE
     Indication: Diffuse large B-cell lymphoma
     Dosage: 25 MG/M2
     Route: 065
  21. DOXORUBICIN HYDROCHLORIDE [Suspect]
     Active Substance: DOXORUBICIN HYDROCHLORIDE
     Indication: Adenoma benign
  22. PREDNISOLONE [Suspect]
     Active Substance: PREDNISOLONE
     Indication: Diffuse large B-cell lymphoma
     Dosage: 40.0 MG/M2 CYCLICAL
  23. PREDNISOLONE [Suspect]
     Active Substance: PREDNISOLONE
     Indication: Adenocarcinoma of colon
     Dosage: 40.0 MG/M2 CYCLICAL
     Route: 065
  24. PREDNISOLONE [Suspect]
     Active Substance: PREDNISOLONE
     Indication: Adenoma benign
     Dosage: 40.0 MG/M2 CYCLICAL
     Route: 065
  25. PREDNISOLONE [Suspect]
     Active Substance: PREDNISOLONE
     Dosage: 40 MG/M2
     Route: 065
  26. PREDNISOLONE [Suspect]
     Active Substance: PREDNISOLONE
     Indication: Diffuse large B-cell lymphoma
     Dosage: UNK
     Route: 065
  27. PREDNISOLONE [Suspect]
     Active Substance: PREDNISOLONE
     Indication: Adenoma benign
     Dosage: UNK
     Route: 065
  28. PREDNISOLONE [Suspect]
     Active Substance: PREDNISOLONE
     Indication: Adenocarcinoma of colon
  29. VINCRISTINE [Suspect]
     Active Substance: VINCRISTINE
     Indication: Diffuse large B-cell lymphoma
     Dosage: 1.0 MILLIGRAM CYCLICAL
  30. VINCRISTINE [Suspect]
     Active Substance: VINCRISTINE
     Indication: Adenoma benign
     Dosage: 1.0 MILLIGRAM
     Route: 065
  31. VINCRISTINE SULFATE [Suspect]
     Active Substance: VINCRISTINE SULFATE
     Indication: Diffuse large B-cell lymphoma
     Dosage: UNK
     Route: 065
  32. VINCRISTINE SULFATE [Suspect]
     Active Substance: VINCRISTINE SULFATE
     Indication: Adenocarcinoma of colon
     Dosage: UNK
     Route: 065
  33. VINCRISTINE SULFATE [Suspect]
     Active Substance: VINCRISTINE SULFATE
     Indication: Adenoma benign
  34. VINCRISTINE SULFATE [Suspect]
     Active Substance: VINCRISTINE SULFATE
     Indication: Diffuse large B-cell lymphoma
     Dosage: 1.0 MILLIGRAM CYCLICAL
     Route: 065
  35. VINCRISTINE SULFATE [Suspect]
     Active Substance: VINCRISTINE SULFATE
     Indication: Adenocarcinoma of colon
     Dosage: 1.0 MILLIGRAM CYCLICAL
     Route: 065
  36. VINCRISTINE SULFATE [Suspect]
     Active Substance: VINCRISTINE SULFATE
     Indication: Adenoma benign
  37. CYCLOPHOSPHAMIDE [Suspect]
     Active Substance: CYCLOPHOSPHAMIDE
     Indication: Diffuse large B-cell lymphoma
     Dosage: 400 MG/M2
     Route: 065
  38. CYCLOPHOSPHAMIDE [Suspect]
     Active Substance: CYCLOPHOSPHAMIDE
     Indication: Adenoma benign
  39. FILGRASTIM [Concomitant]
     Active Substance: FILGRASTIM
     Indication: Prophylaxis
     Dosage: UNK
     Route: 065

REACTIONS (7)
  - Pleural effusion [Unknown]
  - Toxicity to various agents [Unknown]
  - Device related thrombosis [Unknown]
  - Candida infection [Unknown]
  - Diarrhoea [Unknown]
  - Off label use [Unknown]
  - Off label use [Unknown]
